FAERS Safety Report 8979371 (Version 1)
Quarter: 2012Q4

REPORT INFORMATION
  Report Type: 
  Country: CN (occurrence: CN)
  Receive Date: 20121221
  Receipt Date: 20121221
  Transmission Date: 20130627
  Serious: Yes (Other)
  Sender: FDA-Public Use
  Company Number: CN-BAYER-2012-133644

PATIENT
  Age: 55 Year
  Sex: Female
  Weight: 55 kg

DRUGS (1)
  1. BAYASPIRIN [Suspect]
     Indication: ANTIPLATELET THERAPY
     Dosage: 100 mg, QD
     Route: 048
     Dates: start: 20100901, end: 20100921

REACTIONS (2)
  - Erythropenia [Recovering/Resolving]
  - Thrombocytopenia [Recovering/Resolving]
